FAERS Safety Report 9705424 (Version 1)
Quarter: 2013Q4

REPORT INFORMATION
  Report Type: Spontaneous
  Country: DE (occurrence: DE)
  Receive Date: 20131122
  Receipt Date: 20131122
  Transmission Date: 20140711
  Serious: Yes (Other)
  Sender: FDA-Public Use
  Company Number: DE-TEVA-444682GER

PATIENT
  Age: 0 Year
  Sex: Male

DRUGS (4)
  1. CITALOPRAM [Suspect]
     Route: 064
  2. GYNVITAL GRAVIDA [Concomitant]
     Route: 064
  3. AZITHROMYCIN [Concomitant]
     Route: 064
  4. SPIROPENT [Concomitant]
     Route: 064

REACTIONS (3)
  - Convulsion neonatal [Unknown]
  - Haemolytic anaemia [Recovered/Resolved]
  - Hyperbilirubinaemia neonatal [Recovered/Resolved]
